FAERS Safety Report 17581903 (Version 1)
Quarter: 2020Q1

REPORT INFORMATION
  Report Type: Spontaneous
  Country: US (occurrence: US)
  Receive Date: 20200325
  Receipt Date: 20200325
  Transmission Date: 20200409
  Serious: Yes (Hospitalization, Other)
  Sender: FDA-Public Use
  Company Number: US-GILEAD-2020-0456338

PATIENT
  Age: 32 Year
  Sex: Male
  Weight: 159.9 kg

DRUGS (1)
  1. YESCARTA [Suspect]
     Active Substance: AXICABTAGENE CILOLEUCEL
     Indication: DIFFUSE LARGE B-CELL LYMPHOMA
     Dosage: 68 ML, ONCE; 42 MINUTE INFUSION
     Route: 042
     Dates: start: 20190917, end: 20190917

REACTIONS (10)
  - Acute kidney injury [Unknown]
  - Gait disturbance [Recovered/Resolved]
  - Arnold-Chiari malformation [Not Recovered/Not Resolved]
  - Syringomyelia [Not Recovered/Not Resolved]
  - Cytokine release syndrome [Recovered/Resolved]
  - Head discomfort [Recovered/Resolved]
  - Tremor [Recovered/Resolved]
  - Urinary tract infection [Unknown]
  - Muscular weakness [Recovered/Resolved]
  - Headache [Recovered/Resolved]

NARRATIVE: CASE EVENT DATE: 201909
